FAERS Safety Report 5968640-6 (Version None)
Quarter: 2008Q4

REPORT INFORMATION
  Report Type: 
  Country: None (occurrence: None)
  Receive Date: 20081126
  Receipt Date: 20081119
  Transmission Date: 20090506
  Serious: Yes (Hospitalization, Other)
  Sender: FDA-Public Use
  Company Number: US-ELI_LILLY_AND_COMPANY-US200811004978

PATIENT
  Age: 83 Year
  Sex: Female

DRUGS (1)
  1. FORTEO [Suspect]
     Dosage: UNK, UNK
     Dates: start: 20080101, end: 20080101

REACTIONS (9)
  - CEREBROVASCULAR DISORDER [None]
  - CONSTIPATION [None]
  - FALL [None]
  - FEELING ABNORMAL [None]
  - HOSPITALISATION [None]
  - MOBILITY DECREASED [None]
  - PAIN [None]
  - PARKINSON'S DISEASE [None]
  - POLLAKIURIA [None]
